FAERS Safety Report 5394665-8 (Version None)
Quarter: 2007Q3

REPORT INFORMATION
  Report Type: 
  Country: None (occurrence: None)
  Receive Date: 20070723
  Receipt Date: 20070717
  Transmission Date: 20080115
  Serious: Yes (Other)
  Sender: FDA-Public Use
  Company Number: JP-GILEAD-2007-0012694

PATIENT
  Age: 60 Year
  Sex: Male

DRUGS (2)
  1. HEPSERA [Suspect]
     Route: 048
     Dates: start: 20030101, end: 20061101
  2. LAMIVUDINE [Concomitant]

REACTIONS (3)
  - HYPOPHOSPHATAEMIA [None]
  - OSTEOMALACIA [None]
  - RENAL TUBULAR DISORDER [None]
